FAERS Safety Report 24020362 (Version 1)
Quarter: 2024Q2

REPORT INFORMATION
  Report Type: Report from Study
  Country: ES (occurrence: ES)
  Receive Date: 20240627
  Receipt Date: 20240627
  Transmission Date: 20240716
  Serious: Yes (Other)
  Sender: FDA-Public Use
  Company Number: ES-JNJFOC-20240655989

PATIENT

DRUGS (1)
  1. ERLEADA [Interacting]
     Active Substance: APALUTAMIDE
     Indication: Hormone-dependent prostate cancer
     Route: 048

REACTIONS (12)
  - Skin reaction [Unknown]
  - Hypothyroidism [Unknown]
  - Cardiac failure congestive [Unknown]
  - Seizure [Unknown]
  - Cerebrovascular accident [Unknown]
  - Hypertension [Unknown]
  - Insomnia [Unknown]
  - Weight fluctuation [Unknown]
  - Blood catecholamines increased [Unknown]
  - Arthralgia [Unknown]
  - Asthenia [Unknown]
  - Drug interaction [Unknown]
